FAERS Safety Report 23016226 (Version 1)
Quarter: 2023Q4

REPORT INFORMATION
  Report Type: Spontaneous
  Country: JP (occurrence: JP)
  Receive Date: 20231002
  Receipt Date: 20231002
  Transmission Date: 20240110
  Serious: Yes (Hospitalization, Other)
  Sender: FDA-Public Use
  Company Number: JP-MSD-M2023-40495

PATIENT
  Age: 7 Decade
  Sex: Female

DRUGS (1)
  1. KEYTRUDA [Suspect]
     Active Substance: PEMBROLIZUMAB
     Indication: Uterine cancer
     Dosage: 200 MILLIGRAM, Q3W
     Route: 041

REACTIONS (7)
  - General physical health deterioration [Unknown]
  - Decreased appetite [Recovering/Resolving]
  - Adrenal insufficiency [Unknown]
  - Rash [Recovered/Resolved]
  - Rash [Unknown]
  - Neutrophil count decreased [Unknown]
  - Malaise [Recovering/Resolving]
